FAERS Safety Report 5673667-8 (Version None)
Quarter: 2008Q1

REPORT INFORMATION
  Report Type: 
  Country: None (occurrence: None)
  Receive Date: 20080319
  Receipt Date: 20080307
  Transmission Date: 20080703
  Serious: Yes (Other)
  Sender: FDA-Public Use
  Company Number: US-PFIZER INC-2008003140

PATIENT
  Sex: Female
  Weight: 93 kg

DRUGS (4)
  1. CHANTIX [Suspect]
     Indication: SMOKING CESSATION THERAPY
     Route: 048
     Dates: start: 20071119, end: 20071213
  2. CELEXA [Concomitant]
     Dosage: DAILY DOSE:40MG
  3. CALCIUM [Concomitant]
     Dosage: TEXT:BID
  4. VITAMIN CAP [Concomitant]
     Dosage: TEXT:DAILY

REACTIONS (6)
  - APATHY [None]
  - DISTURBANCE IN ATTENTION [None]
  - EMOTIONAL DISORDER [None]
  - MEMORY IMPAIRMENT [None]
  - PERSONALITY CHANGE [None]
  - VULVOVAGINAL MYCOTIC INFECTION [None]
